FAERS Safety Report 8934550 (Version 1)
Quarter: 2012Q4

REPORT INFORMATION
  Report Type: Report from Study
  Country: KR (occurrence: KR)
  Receive Date: 20121129
  Receipt Date: 20121129
  Transmission Date: 20130627
  Serious: Yes (Other)
  Sender: FDA-Public Use
  Company Number: KR-BAYER-2012-121547

PATIENT
  Age: 33 Year
  Sex: Male

DRUGS (2)
  1. NIMODIPINE [Suspect]
     Indication: VASOSPASM CEREBRAL
     Route: 013
  2. NIMODIPINE [Suspect]
     Indication: RUPTURED CEREBRAL ANEURYSM

REACTIONS (1)
  - Cerebral haemorrhage [None]
